FAERS Safety Report 7650768-6 (Version None)
Quarter: 2011Q3

REPORT INFORMATION
  Report Type: 
  Country: None (occurrence: None)
  Receive Date: 20110802
  Receipt Date: 20110728
  Transmission Date: 20111222
  Serious: Yes (Other)
  Sender: FDA-Public Use
  Company Number: JP-PFIZER INC-2011172442

PATIENT
  Age: 81 Year
  Sex: Male

DRUGS (7)
  1. CALFINA [Concomitant]
  2. MAGMITT [Concomitant]
  3. VESICARE [Concomitant]
  4. ZOLPIDEM [Concomitant]
  5. FLIVAS [Concomitant]
  6. LYRICA [Suspect]
     Dosage: 150 MG DAILY
     Dates: start: 20110101
  7. EPADEL [Concomitant]

REACTIONS (6)
  - PYREXIA [None]
  - RHABDOMYOLYSIS [None]
  - FALL [None]
  - URINARY INCONTINENCE [None]
  - GAIT DISTURBANCE [None]
  - WHITE BLOOD CELL COUNT DECREASED [None]
